FAERS Safety Report 21011206 (Version 13)
Quarter: 2025Q4

REPORT INFORMATION
  Report Type: Report from Study
  Country: CA (occurrence: CA)
  Receive Date: 20220627
  Receipt Date: 20251112
  Transmission Date: 20260117
  Serious: Yes (Other)
  Sender: TAKEDA
  Company Number: CA-TAKEDA-2022TUS042312

PATIENT
  Age: 60 Year
  Sex: Male
  Weight: 63.492 kg

DRUGS (8)
  1. VEDOLIZUMAB [Suspect]
     Active Substance: VEDOLIZUMAB
     Indication: Colitis ulcerative
     Dosage: 300 MILLIGRAM
  2. VEDOLIZUMAB [Suspect]
     Active Substance: VEDOLIZUMAB
     Dosage: 300 MILLIGRAM, Q4WEEKS
     Dates: start: 20211110
  3. VEDOLIZUMAB [Suspect]
     Active Substance: VEDOLIZUMAB
     Dosage: 300 MILLIGRAM, Q4WEEKS
  4. VEDOLIZUMAB [Suspect]
     Active Substance: VEDOLIZUMAB
     Dosage: 300 MILLIGRAM, Q4WEEKS
  5. VEDOLIZUMAB [Suspect]
     Active Substance: VEDOLIZUMAB
     Dosage: 300 MILLIGRAM, Q4WEEKS
  6. PREDNISONE [Concomitant]
     Active Substance: PREDNISONE
     Dosage: UNK
  7. RAMIPRIL [Concomitant]
     Active Substance: RAMIPRIL
     Indication: Hypertension
     Dosage: UNK
  8. PENTASA [Concomitant]
     Active Substance: MESALAMINE
     Indication: Colitis ulcerative
     Dosage: UNK, QD
     Dates: start: 20250131

REACTIONS (16)
  - Colitis ulcerative [Recovering/Resolving]
  - Haemorrhage [Unknown]
  - Rectal stenosis [Unknown]
  - Adiposis dolorosa [Recovering/Resolving]
  - Nocturia [Unknown]
  - Depression [Unknown]
  - Anxiety [Unknown]
  - Diarrhoea [Unknown]
  - Gastrointestinal scarring [Unknown]
  - Frequent bowel movements [Not Recovered/Not Resolved]
  - Drug ineffective [Unknown]
  - Irritable bowel syndrome [Unknown]
  - Post procedural haematoma [Recovering/Resolving]
  - Ear discomfort [Unknown]
  - Decreased appetite [Unknown]
  - Constipation [Unknown]
